FAERS Safety Report 22297971 (Version 1)
Quarter: 2023Q2

REPORT INFORMATION
  Report Type: Report from Study
  Country: US (occurrence: US)
  Receive Date: 20230509
  Receipt Date: 20230509
  Transmission Date: 20230721
  Serious: Yes (Hospitalization)
  Sender: FDA-Public Use
  Company Number: US-TAKEDA-2023TUS045382

PATIENT
  Age: 26 Year
  Sex: Male

DRUGS (8)
  1. TEDUGLUTIDE [Suspect]
     Active Substance: TEDUGLUTIDE
     Indication: Short-bowel syndrome
     Dosage: 2.8 MILLIGRAM, QD
     Route: 042
     Dates: start: 20220213
  2. TEDUGLUTIDE [Suspect]
     Active Substance: TEDUGLUTIDE
     Indication: Short-bowel syndrome
     Dosage: 2.8 MILLIGRAM, QD
     Route: 042
     Dates: start: 20220213
  3. TEDUGLUTIDE [Suspect]
     Active Substance: TEDUGLUTIDE
     Indication: Short-bowel syndrome
     Dosage: 2.8 MILLIGRAM, QD
     Route: 042
     Dates: start: 20220213
  4. TEDUGLUTIDE [Suspect]
     Active Substance: TEDUGLUTIDE
     Indication: Short-bowel syndrome
     Dosage: 2.8 MILLIGRAM, QD
     Route: 042
     Dates: start: 20220213
  5. METHYLPHENIDATE HYDROCHLORIDE [Concomitant]
     Active Substance: METHYLPHENIDATE HYDROCHLORIDE
     Dosage: 0.50 MILLIGRAM, QD
     Route: 048
     Dates: start: 2022
  6. FOLIC ACID [Concomitant]
     Active Substance: FOLIC ACID
     Indication: Hypovitaminosis
     Dosage: 1 MILLIGRAM, TID
     Route: 048
     Dates: start: 2022
  7. ENOXAPARIN [Concomitant]
     Active Substance: ENOXAPARIN
     Indication: Deep vein thrombosis
     Dosage: 0.50 MILLILITER, Q12H
     Route: 058
     Dates: start: 2022
  8. ZOFRAN [Concomitant]
     Active Substance: ONDANSETRON HYDROCHLORIDE
     Indication: Nausea
     Dosage: 2 MILLILITER, QD
     Route: 042
     Dates: start: 20220930, end: 20220930

REACTIONS (2)
  - Device leakage [Recovered/Resolved]
  - Gastrointestinal stoma complication [Recovered/Resolved]

NARRATIVE: CASE EVENT DATE: 20221216
